FAERS Safety Report 16342981 (Version 1)
Quarter: 2019Q2

REPORT INFORMATION
  Report Type: Spontaneous
  Country: CA (occurrence: CA)
  Receive Date: 20190522
  Receipt Date: 20190522
  Transmission Date: 20190711
  Serious: Yes (Other)
  Sender: FDA-Public Use
  Company Number: CA-TEVA-2019-CA-1051282

PATIENT
  Age: 71 Year
  Sex: Female

DRUGS (6)
  1. NYSTATIN. [Suspect]
     Active Substance: NYSTATIN
     Indication: PRODUCT USED FOR UNKNOWN INDICATION
     Route: 065
  2. DEXILANT [Suspect]
     Active Substance: DEXLANSOPRAZOLE
     Indication: CHRONIC GASTRITIS
     Route: 065
  3. OTEZLA [Suspect]
     Active Substance: APREMILAST
     Indication: LICHEN PLANUS
  4. OTEZLA [Suspect]
     Active Substance: APREMILAST
     Indication: OFF LABEL USE
     Dosage: 60 MILLIGRAM DAILY;
     Route: 048
  5. DIOVAN HCT [Concomitant]
     Active Substance: HYDROCHLOROTHIAZIDE\VALSARTAN
     Indication: PRODUCT USED FOR UNKNOWN INDICATION
     Route: 065
  6. LIPITOR [Concomitant]
     Active Substance: ATORVASTATIN CALCIUM
     Indication: PRODUCT USED FOR UNKNOWN INDICATION
     Route: 065

REACTIONS (1)
  - Diverticulum [Not Recovered/Not Resolved]
